FAERS Safety Report 4408355-9 (Version None)
Quarter: 2004Q3

REPORT INFORMATION
  Report Type: 
  Country: None (occurrence: None)
  Receive Date: 20040722
  Receipt Date: 20040708
  Transmission Date: 20050211
  Serious: No
  Sender: FDA-Public Use
  Company Number: 2004UW14086

PATIENT
  Age: 68 Year
  Sex: Male

DRUGS (5)
  1. IRESSA [Suspect]
     Indication: NON-SMALL CELL LUNG CANCER METASTATIC
     Dosage: 250 MG PO
     Route: 048
     Dates: start: 20040101
  2. PERCOCET [Concomitant]
  3. OXYCODON [Concomitant]
  4. OXANDROLONE [Concomitant]
  5. COLACE [Concomitant]

REACTIONS (1)
  - PEMPHIGUS [None]
